FAERS Safety Report 11148623 (Version 9)
Quarter: 2022Q1

REPORT INFORMATION
  Report Type: Spontaneous
  Country: US (occurrence: US)
  Receive Date: 20150529
  Receipt Date: 20220323
  Transmission Date: 20220423
  Serious: No
  Sender: FDA-Public Use
  Company Number: US-PFIZER INC-2015176038

PATIENT
  Age: 71 Year
  Sex: Male
  Weight: 132 kg

DRUGS (10)
  1. SUTENT [Suspect]
     Active Substance: SUNITINIB MALATE
     Indication: Renal cancer stage IV
     Dosage: 37.5 MG, CYCLIC (2 WEEKS ON/1 WEEK OFF;)
     Dates: start: 20150422, end: 20150503
  2. SUTENT [Suspect]
     Active Substance: SUNITINIB MALATE
     Dosage: 37.5 MG, 1X/DAY (2 WEEKS)
     Dates: start: 20150513
  3. SUTENT [Suspect]
     Active Substance: SUNITINIB MALATE
     Dosage: 37.5 MG, 1X/DAY (2 WEEKS)
     Dates: start: 20150603
  4. SUTENT [Suspect]
     Active Substance: SUNITINIB MALATE
     Dosage: 37.5 MG, 1X/DAY (2 WEEKS)
     Dates: start: 20150624
  5. SUTENT [Suspect]
     Active Substance: SUNITINIB MALATE
     Dosage: 37.5 MG, 1X/DAY (2 WEEKS)
     Dates: start: 20150715
  6. SUTENT [Suspect]
     Active Substance: SUNITINIB MALATE
     Dosage: 37.5 MG, CYCLIC (TAKE 1 CAP BY MOUTH ONCE A DAY FOR 1 WEEK, THEN 1 WEEK OFF THEN REPEAT)
  7. SIMVASTATIN [Concomitant]
     Active Substance: SIMVASTATIN
     Dosage: UNK
     Dates: start: 20141127
  8. TESSALON [Concomitant]
     Active Substance: BENZONATATE
     Dosage: UNK
     Dates: start: 20141117
  9. KEPPRA [Concomitant]
     Active Substance: LEVETIRACETAM
     Dosage: UNK
     Dates: start: 20141117
  10. COMPAZINE [Concomitant]
     Active Substance: PROCHLORPERAZINE MALEATE
     Dosage: UNK

REACTIONS (13)
  - Nausea [Recovered/Resolved]
  - Diarrhoea [Recovered/Resolved]
  - Hypoaesthesia [Recovering/Resolving]
  - Paraesthesia [Recovering/Resolving]
  - Pain [Unknown]
  - Cough [Unknown]
  - Vomiting [Unknown]
  - Fatigue [Unknown]
  - Rash pruritic [Unknown]
  - Rash erythematous [Unknown]
  - Swelling [Unknown]
  - Hypoacusis [Unknown]
  - Oedema peripheral [Unknown]

NARRATIVE: CASE EVENT DATE: 20150503
